FAERS Safety Report 4960051-5 (Version None)
Quarter: 2006Q1

REPORT INFORMATION
  Report Type: 
  Country: None (occurrence: None)
  Receive Date: 20060331
  Receipt Date: 20051026
  Transmission Date: 20060701
  Serious: Yes (Death)
  Sender: FDA-Public Use
  Company Number: US-MERCK-0510USA09752

PATIENT
  Age: 80 Year
  Sex: Male
  Weight: 85 kg

DRUGS (2)
  1. VIOXX [Suspect]
     Indication: ARTHRITIS
     Route: 048
     Dates: start: 19990910, end: 20000921
  2. VIOXX [Suspect]
     Indication: GOUT
     Route: 048
     Dates: start: 19990910, end: 20000921

REACTIONS (5)
  - CARDIOVASCULAR DISORDER [None]
  - EMOTIONAL DISORDER [None]
  - OVERDOSE [None]
  - POLYTRAUMATISM [None]
  - SINUSITIS [None]
